FAERS Safety Report 20610700 (Version 1)
Quarter: 2022Q1

REPORT INFORMATION
  Report Type: Report from Study
  Country: US (occurrence: US)
  Receive Date: 20220318
  Receipt Date: 20220318
  Transmission Date: 20220423
  Serious: Yes (Hospitalization)
  Sender: FDA-Public Use
  Company Number: US-GILEAD-2022-0573844

PATIENT
  Age: 14 Year
  Sex: Female

DRUGS (1)
  1. AZTREONAM LYSINE [Suspect]
     Active Substance: AZTREONAM LYSINE
     Indication: Cystic fibrosis
     Dosage: 75 MG, 1 ML VIA NEB Q 8 HOURS EVERY OTHER MONTH
     Route: 055
     Dates: start: 20190607

REACTIONS (1)
  - Liver disorder [Not Recovered/Not Resolved]
